FAERS Safety Report 4672829-6 (Version None)
Quarter: 2005Q2

REPORT INFORMATION
  Report Type: 
  Country: None (occurrence: None)
  Receive Date: 20050524
  Receipt Date: 20050512
  Transmission Date: 20051028
  Serious: Yes (Disabling)
  Sender: FDA-Public Use
  Company Number: PHBS2005IT06921

PATIENT
  Age: 68 Year
  Sex: Female

DRUGS (3)
  1. ZOMETA [Suspect]
     Indication: MULTIPLE MYELOMA
     Dosage: 4 MG, QMO
     Route: 042
     Dates: start: 20020109, end: 20031124
  2. PREDNISONE [Concomitant]
     Indication: MULTIPLE MYELOMA
  3. ALKERAN [Concomitant]
     Indication: MULTIPLE MYELOMA

REACTIONS (2)
  - ASEPTIC NECROSIS BONE [None]
  - SEQUESTRECTOMY [None]
